FAERS Safety Report 17281646 (Version 1)
Quarter: 2020Q1

REPORT INFORMATION
  Report Type: Spontaneous
  Country: US (occurrence: US)
  Receive Date: 20200117
  Receipt Date: 20200117
  Transmission Date: 20200409
  Serious: Yes (Hospitalization, Other)
  Sender: FDA-Public Use
  Company Number: US-SA-2020SA012201

PATIENT
  Age: 67 Year
  Sex: Male
  Weight: 85.71 kg

DRUGS (24)
  1. DUPIXENT [Suspect]
     Active Substance: DUPILUMAB
     Indication: ASTHMA
     Dosage: UNK
     Dates: start: 20181205, end: 2019
  2. SEPTRA DS [Concomitant]
     Active Substance: SULFAMETHOXAZOLE\TRIMETHOPRIM
     Dosage: 1 DF, QD
     Route: 048
  3. FLOMAX [Concomitant]
     Active Substance: TAMSULOSIN HYDROCHLORIDE
     Dosage: 0.4 MG, QD
     Route: 048
  4. NEURONTIN [Concomitant]
     Active Substance: GABAPENTIN
     Dosage: 3 DF, QD, NIGHTLY
     Route: 048
  5. DUONEB [Concomitant]
     Active Substance: ALBUTEROL SULFATE\IPRATROPIUM BROMIDE
     Indication: DYSPNOEA
     Dosage: 1 DF, Q4H, PRN
     Route: 055
  6. COZAAR [Concomitant]
     Active Substance: LOSARTAN POTASSIUM
     Dosage: 1 DF, QD
     Route: 048
  7. DELTASONE [Concomitant]
     Active Substance: PREDNISONE
     Dosage: 3 DF, QD
     Route: 048
  8. CYMBALTA [Concomitant]
     Active Substance: DULOXETINE HYDROCHLORIDE
     Dosage: 2 DF, QD,EVENING
     Route: 048
  9. VESICARE [Concomitant]
     Active Substance: SOLIFENACIN SUCCINATE
     Dosage: 5 MG, QD
     Route: 048
  10. PREDNISONE. [Concomitant]
     Active Substance: PREDNISONE
     Dosage: 40 MG, QD
  11. BACTRIM [Concomitant]
     Active Substance: SULFAMETHOXAZOLE\TRIMETHOPRIM
     Dosage: 1 DF, QD
     Route: 048
  12. OSCAL [CALCIUM CARBONATE] [Concomitant]
     Dosage: 1 DF, BID
     Route: 048
  13. ECOTRIN [Concomitant]
     Active Substance: ASPIRIN
     Dosage: 81 MG, QD
     Route: 048
  14. ONE A DAY [MINERALS NOS;VITAMINS NOS] [Concomitant]
     Dosage: 1 DF, QD
     Route: 048
  15. VITAMIN D3 [Concomitant]
     Active Substance: CHOLECALCIFEROL
     Dosage: UNK
  16. VITAMIN C [Concomitant]
     Active Substance: ASCORBIC ACID
  17. DUONEB [Concomitant]
     Active Substance: ALBUTEROL SULFATE\IPRATROPIUM BROMIDE
     Indication: WHEEZING
  18. CHOLECALCIFEROL [Concomitant]
     Active Substance: CHOLECALCIFEROL
     Dosage: UNK
  19. PRILOSEC [Concomitant]
     Active Substance: OMEPRAZOLE MAGNESIUM
     Dosage: 20 MG, QD
     Route: 048
  20. SYMBICORT [Concomitant]
     Active Substance: BUDESONIDE\FORMOTEROL FUMARATE DIHYDRATE
     Dosage: 2 DF, BID
     Route: 055
  21. PRAVACHOL [Concomitant]
     Active Substance: PRAVASTATIN SODIUM
     Dosage: 1DF, QD, NIGHTLY
     Route: 048
  22. PROVENTIL HFA [SALBUTAMOL] [Concomitant]
     Indication: DYSPNOEA
     Dosage: 2 DF, TID, PRN
     Route: 055
  23. DELTASONE [Concomitant]
     Active Substance: PREDNISONE
     Dosage: 2 DF, QD
     Route: 048
  24. PROVENTIL HFA [SALBUTAMOL] [Concomitant]
     Indication: WHEEZING

REACTIONS (11)
  - Muscular weakness [Recovered/Resolved]
  - Ejection fraction decreased [Recovering/Resolving]
  - Cardiac disorder [Unknown]
  - Eosinophil count increased [Recovered/Resolved]
  - Myalgia [Recovered/Resolved]
  - Cough [Unknown]
  - Blood creatine phosphokinase increased [Recovering/Resolving]
  - Muscle disorder [Unknown]
  - Leukocytosis [Recovered/Resolved]
  - Hypereosinophilic syndrome [Recovered/Resolved]
  - Troponin increased [Recovering/Resolving]

NARRATIVE: CASE EVENT DATE: 201903
